FAERS Safety Report 17907358 (Version 1)
Quarter: 2020Q2

REPORT INFORMATION
  Report Type: Spontaneous
  Country: GB (occurrence: GB)
  Receive Date: 20200617
  Receipt Date: 20200617
  Transmission Date: 20200714
  Serious: Yes (Hospitalization)
  Sender: FDA-Public Use
  Company Number: GB-NEBO-PC005700

PATIENT
  Age: 27 Year
  Sex: Female
  Weight: 40.6 kg

DRUGS (2)
  1. IRON [Concomitant]
     Active Substance: IRON
     Route: 048
  2. MONOFER [Suspect]
     Active Substance: IRON ISOMALTOSIDE 1000
     Indication: IRON DEFICIENCY ANAEMIA
     Route: 042
     Dates: start: 20200527, end: 20200527

REACTIONS (7)
  - Maternal exposure during pregnancy [Unknown]
  - Vomiting [Recovered/Resolved]
  - Caesarean section [Unknown]
  - Retching [Recovered/Resolved]
  - Hypersensitivity [Recovered/Resolved]
  - Uterine hypertonus [Unknown]
  - Premature baby [Unknown]

NARRATIVE: CASE EVENT DATE: 20200527
